FAERS Safety Report 26184917 (Version 1)
Quarter: 2025Q4

REPORT INFORMATION
  Report Type: Spontaneous
  Country: EU (occurrence: EU)
  Receive Date: 20251222
  Receipt Date: 20251222
  Transmission Date: 20260117
  Serious: Yes (Other)
  Sender: AUROBINDO
  Company Number: EU-AFSSAPS-PA2025001076

PATIENT
  Age: 43 Year
  Sex: Male
  Weight: 95 kg

DRUGS (16)
  1. GABAPENTIN [Suspect]
     Active Substance: GABAPENTIN
     Indication: Product used for unknown indication
     Dosage: 300 MILLIGRAM, ONCE A DAY
     Route: 061
     Dates: start: 20251025, end: 20251030
  2. KETAMINE [Suspect]
     Active Substance: KETAMINE
     Indication: Analgesic therapy
     Dosage: 10 MILLIGRAM
     Dates: start: 20251023, end: 20251023
  3. KETAMINE [Suspect]
     Active Substance: KETAMINE
     Dosage: 30 MILLIGRAM
     Dates: start: 20251024, end: 20251024
  4. KETAMINE [Suspect]
     Active Substance: KETAMINE
     Dosage: 50 MILLIGRAM
     Dates: start: 20251026, end: 20251026
  5. KETAMINE [Suspect]
     Active Substance: KETAMINE
     Dosage: 30 MILLIGRAM
     Dates: start: 20251027, end: 20251027
  6. KETAMINE [Suspect]
     Active Substance: KETAMINE
     Dosage: 20 MILLIGRAM, ONCE A DAY
     Dates: start: 20251028, end: 20251029
  7. KETAMINE [Suspect]
     Active Substance: KETAMINE
     Dosage: 10 MILLIGRAM
     Dates: start: 20251030, end: 20251030
  8. ACETAMINOPHEN [Suspect]
     Active Substance: ACETAMINOPHEN
     Indication: Analgesic therapy
     Dosage: 4 GRAM, ONCE A DAY
     Dates: start: 20251023, end: 20251030
  9. ACUPAN [Suspect]
     Active Substance: NEFOPAM HYDROCHLORIDE
     Indication: Analgesic therapy
     Dosage: 120 MILLIGRAM, ONCE A DAY
     Dates: start: 20251022, end: 20251030
  10. MORPHINE HYDROCHLORIDE [Suspect]
     Active Substance: MORPHINE HYDROCHLORIDE
     Indication: Analgesic therapy
     Dosage: 40 MILLIGRAM ( 1 TOTAL)
     Dates: start: 20251023, end: 20251023
  11. MORPHINE HYDROCHLORIDE [Suspect]
     Active Substance: MORPHINE HYDROCHLORIDE
     Dosage: 60 MILLIGRAM
     Dates: start: 20251024, end: 20251024
  12. MORPHINE HYDROCHLORIDE [Suspect]
     Active Substance: MORPHINE HYDROCHLORIDE
     Dosage: 20 MILLIGRAM
     Dates: start: 20251025, end: 20251025
  13. MORPHINE HYDROCHLORIDE [Suspect]
     Active Substance: MORPHINE HYDROCHLORIDE
     Dosage: 10 MILLIGRAM
     Dates: start: 20251026, end: 20251026
  14. MORPHINE HYDROCHLORIDE [Suspect]
     Active Substance: MORPHINE HYDROCHLORIDE
     Dosage: 30 MILLIGRAM
     Dates: start: 20251027, end: 20251027
  15. MORPHINE HYDROCHLORIDE [Suspect]
     Active Substance: MORPHINE HYDROCHLORIDE
     Dosage: 20 MILLIGRAM
     Dates: start: 20251028, end: 20251028
  16. MORPHINE HYDROCHLORIDE [Suspect]
     Active Substance: MORPHINE HYDROCHLORIDE
     Dosage: 10 MILLIGRAM, ONCE A DAY
     Dates: start: 20251029, end: 20251030

REACTIONS (1)
  - Mixed liver injury [Recovering/Resolving]

NARRATIVE: CASE EVENT DATE: 20251027
